FAERS Safety Report 9528692 (Version 1)
Quarter: 2013Q1

REPORT INFORMATION
  Report Type: Spontaneous
  Country: US (occurrence: None)
  Receive Date: 20130320
  Receipt Date: 20130320
  Transmission Date: 20140127
  Serious: Yes (Death)
  Sender: FDA-Public Use
  Company Number: 075344

PATIENT
  Age: 28 Year
  Sex: Male

DRUGS (5)
  1. ALPRAZOLAM [Suspect]
     Dosage: () (TO NOT CONTINUING)
  2. AMFETAMINE [Suspect]
     Dosage: () (TO NOT CONTINUING)
  3. DOXEPIN [Suspect]
  4. TRAMADOL [Suspect]
     Dosage: () (TO NOT CONTINUING)
  5. ETHANOL [Suspect]
     Dosage: () (TO NOT CONTINUING)

REACTIONS (1)
  - Accidental poisoning [None]
